FAERS Safety Report 17969756 (Version 1)
Quarter: 2020Q3

REPORT INFORMATION
  Report Type: Spontaneous
  Country: SE (occurrence: SE)
  Receive Date: 20200701
  Receipt Date: 20200701
  Transmission Date: 20201103
  Serious: Yes (Other)
  Sender: FDA-Public Use
  Company Number: SE-EISAI MEDICAL RESEARCH-EC-2020-076460

PATIENT
  Age: 27 Year
  Sex: Male

DRUGS (5)
  1. PRO?EPANUTIN [Concomitant]
     Active Substance: FOSPHENYTOIN SODIUM
     Indication: PRODUCT USED FOR UNKNOWN INDICATION
     Dosage: DOSAGE AND FREQUENCY UNKNOWN
     Dates: start: 202006, end: 202006
  2. INOVELON [Suspect]
     Active Substance: RUFINAMIDE
     Indication: EPILEPSY
     Route: 048
     Dates: end: 202006
  3. STESOLID [Concomitant]
     Active Substance: DIAZEPAM
     Indication: PRODUCT USED FOR UNKNOWN INDICATION
     Dosage: DOSAGE AND FREQUENCY UNKNOWN
     Dates: start: 202006, end: 202006
  4. INOVELON [Suspect]
     Active Substance: RUFINAMIDE
     Dosage: DOSAGE REDUCED (DOSE AND FREQUENCY UNKNOWN)
     Route: 048
     Dates: start: 202006
  5. LORAZEPAM. [Concomitant]
     Active Substance: LORAZEPAM
     Indication: PRODUCT USED FOR UNKNOWN INDICATION
     Dosage: DOSAGE AND FREQUENCY UNKNOWN
     Dates: start: 202006, end: 202006

REACTIONS (1)
  - Coordination abnormal [Recovering/Resolving]

NARRATIVE: CASE EVENT DATE: 202006
